FAERS Safety Report 11995795 (Version 1)
Quarter: 2016Q1

REPORT INFORMATION
  Report Type: Spontaneous
  Country: US (occurrence: US)
  Receive Date: 20160203
  Receipt Date: 20160203
  Transmission Date: 20160526
  Serious: No
  Sender: FDA-Public Use
  Company Number: US-GALDERMA-US14004665

PATIENT
  Age: 28 Year
  Sex: Female

DRUGS (7)
  1. EPIDUO [Suspect]
     Active Substance: ADAPALENE\BENZOYL PEROXIDE
     Indication: ACNE
     Dosage: 0.1%/2.5%
     Route: 061
     Dates: start: 201110, end: 201407
  2. TEA TREE OIL [Concomitant]
     Active Substance: TEA TREE OIL
     Indication: ACNE
     Route: 061
  3. COCONUT OIL [Concomitant]
     Active Substance: COCONUT OIL
  4. UNKNOWN GEL [Concomitant]
     Indication: ACNE
     Route: 061
  5. PANOXYL [Concomitant]
     Active Substance: BENZOYL PEROXIDE
     Route: 061
  6. EPIDUO [Suspect]
     Active Substance: ADAPALENE\BENZOYL PEROXIDE
  7. CLINIQUE FACE CREAM [Concomitant]
     Indication: ACNE
     Route: 061

REACTIONS (2)
  - Rebound effect [Not Recovered/Not Resolved]
  - Acne [Not Recovered/Not Resolved]

NARRATIVE: CASE EVENT DATE: 201408
